FAERS Safety Report 22396322 (Version 1)
Quarter: 2023Q2

REPORT INFORMATION
  Report Type: Spontaneous
  Country: FR (occurrence: FR)
  Receive Date: 20230601
  Receipt Date: 20230601
  Transmission Date: 20230721
  Serious: Yes (Hospitalization)
  Sender: FDA-Public Use
  Company Number: FR-Teikoku Pharma USA-TPU2023-00328

PATIENT
  Age: 84 Year
  Sex: Male

DRUGS (2)
  1. LIDOCAINE [Suspect]
     Active Substance: LIDOCAINE
     Indication: Neuralgia
     Route: 061
  2. OXYGEN [Concomitant]
     Active Substance: OXYGEN

REACTIONS (3)
  - Pneumonia [Unknown]
  - Off label use [Unknown]
  - Product administered at inappropriate site [Unknown]
